FAERS Safety Report 8816539 (Version 1)
Quarter: 2012Q4

REPORT INFORMATION
  Report Type: Spontaneous
  Country: US (occurrence: None)
  Receive Date: 20120927
  Receipt Date: 20120927
  Transmission Date: 20130627
  Serious: Yes (Hospitalization)
  Sender: FDA-Public Use
  Company Number: 139186

PATIENT
  Age: 65 Year
  Sex: Female

DRUGS (1)
  1. DAUNORUBICIN HCL [Suspect]
     Indication: ACUTE MYELOID LEUKEMIA
     Route: 042
     Dates: start: 20120816

REACTIONS (5)
  - Delirium [None]
  - Mental status changes [None]
  - General physical health deterioration [None]
  - Moaning [None]
  - Mutism [None]
